FAERS Safety Report 10105047 (Version 2)
Quarter: 2014Q3

REPORT INFORMATION
  Report Type: Other
  Country: US (occurrence: US)
  Receive Date: 20140424
  Receipt Date: 20140730
  Transmission Date: 20150326
  Serious: Yes (Hospitalization, Other)
  Sender: FDA-Public Use
  Company Number: US-GSKPPD-2014GSK003134

PATIENT
  Age: 67 Year
  Sex: Female

DRUGS (5)
  1. AVANDIA [Suspect]
     Active Substance: ROSIGLITAZONE MALEATE
     Indication: DIABETES MELLITUS
     Dosage: AVANDIA WAS NOT LISTED AMONG THE PATIENTS DISCHARGE RECORDS.
     Route: 048
  2. LISINOPRIL. [Concomitant]
     Active Substance: LISINOPRIL
     Route: 048
  3. DYAZIDE [Concomitant]
     Active Substance: HYDROCHLOROTHIAZIDE\TRIAMTERENE
     Dosage: 37.5/25 MG
     Route: 048
  4. ASPIRIN. [Concomitant]
     Active Substance: ASPIRIN
  5. PLAVIX [Concomitant]
     Active Substance: CLOPIDOGREL BISULFATE
     Route: 047

REACTIONS (2)
  - Transient ischaemic attack [Recovered/Resolved]
  - Cerebrovascular accident [None]

NARRATIVE: CASE EVENT DATE: 20070313
